FAERS Safety Report 10762791 (Version 2)
Quarter: 2015Q1

REPORT INFORMATION
  Report Type: Spontaneous
  Country: US (occurrence: US)
  Receive Date: 20150204
  Receipt Date: 20150317
  Transmission Date: 20150721
  Serious: Yes (Hospitalization, Other)
  Sender: FDA-Public Use
  Company Number: US-PFIZER INC-2015045023

PATIENT
  Age: 69 Year
  Sex: Male

DRUGS (1)
  1. REVATIO [Suspect]
     Active Substance: SILDENAFIL CITRATE
     Indication: PULMONARY ARTERIAL HYPERTENSION
     Dosage: 80 MG (4X20MG), 3 TIMES A DAY (80 MG, EVERY 8 HOURS)
     Route: 048
     Dates: start: 201102

REACTIONS (1)
  - Lower respiratory tract infection [Not Recovered/Not Resolved]
